FAERS Safety Report 5813990-7 (Version None)
Quarter: 2008Q3

REPORT INFORMATION
  Report Type: 
  Country: None (occurrence: None)
  Receive Date: 20080715
  Receipt Date: 20080702
  Transmission Date: 20090109
  Serious: Yes (Death)
  Sender: FDA-Public Use
  Company Number: 14739

PATIENT
  Age: 55 Year
  Sex: Female

DRUGS (2)
  1. MORPHINE SULFATE [Suspect]
     Indication: PAIN
     Dosage: UNKNOWN ORALLY
     Route: 048
     Dates: start: 20070101, end: 20080101
  2. OXYCONTIN [Concomitant]

REACTIONS (3)
  - ACCIDENTAL OVERDOSE [None]
  - PHARMACEUTICAL PRODUCT COMPLAINT [None]
  - UNRESPONSIVE TO STIMULI [None]
